FAERS Safety Report 8956609 (Version 1)
Quarter: 2012Q4

REPORT INFORMATION
  Report Type: 
  Country: DE (occurrence: DE)
  Receive Date: 20121210
  Receipt Date: 20121210
  Transmission Date: 20130627
  Serious: Yes (Disabling, Other)
  Sender: FDA-Public Use
  Company Number: DE-SANOFI-AVENTIS-2012SA089728

PATIENT
  Age: 57 Year
  Sex: Female
  Weight: 76 kg

DRUGS (1)
  1. ARAVA [Suspect]
     Indication: RHEUMATIC DISORDER
     Dosage: daily dose: 20 Mg millgram(s) every Days
     Route: 048
     Dates: start: 201011, end: 201108

REACTIONS (3)
  - Transitional cell carcinoma [Unknown]
  - Haematuria [Unknown]
  - Hypoaesthesia [Unknown]
